FAERS Safety Report 22201560 (Version 1)
Quarter: 2023Q2

REPORT INFORMATION
  Report Type: Spontaneous
  Country: VE (occurrence: None)
  Receive Date: 20230412
  Receipt Date: 20230412
  Transmission Date: 20230722
  Serious: Yes (Other)
  Sender: FDA-Public Use
  Company Number: VE-ROCHE-3325772

PATIENT
  Sex: Female
  Weight: 50 kg

DRUGS (13)
  1. TRASTUZUMAB [Suspect]
     Active Substance: TRASTUZUMAB
     Indication: Breast cancer metastatic
     Dosage: 6 CYCLES
     Route: 041
     Dates: start: 20220223, end: 20220614
  2. TRASTUZUMAB [Suspect]
     Active Substance: TRASTUZUMAB
     Dosage: DURING 18 CYCLES
     Route: 042
     Dates: start: 20220825
  3. PERTUZUMAB [Suspect]
     Active Substance: PERTUZUMAB
     Indication: Breast cancer metastatic
     Dosage: INITIAL DOSE
     Route: 042
     Dates: start: 20220223, end: 20220223
  4. PERTUZUMAB [Suspect]
     Active Substance: PERTUZUMAB
     Dosage: 5 CYCLES
     Route: 042
     Dates: start: 20220316, end: 20220614
  5. PERTUZUMAB [Suspect]
     Active Substance: PERTUZUMAB
     Dosage: DURING 18 CYCLES
     Route: 042
  6. CISPLATIN [Concomitant]
     Active Substance: CISPLATIN
     Indication: Breast cancer metastatic
     Dosage: 6 CYCLES
     Route: 042
     Dates: start: 20220223, end: 20220614
  7. DOCETAXEL [Concomitant]
     Active Substance: DOCETAXEL
     Indication: Breast cancer metastatic
     Dosage: 6 CYCLES
     Route: 042
     Dates: start: 20220223, end: 20220614
  8. LAPATINIB [Concomitant]
     Active Substance: LAPATINIB
     Indication: Breast cancer metastatic
     Dosage: UNTIL PROGRESSION
  9. FULVESTRANT [Concomitant]
     Active Substance: FULVESTRANT
     Indication: Breast cancer metastatic
     Dosage: ON DAY 1, 15 28, THEN 500 MG EVERY 28 DAYS
  10. ONDANSETRON [Concomitant]
     Active Substance: ONDANSETRON
     Dosage: ON CHEMOTHERAPY DAYS
  11. APREPITANT [Concomitant]
     Active Substance: APREPITANT
     Dosage: ON CHEMOTHERAPY DAYS
  12. OMEPRAZOLE [Concomitant]
     Active Substance: OMEPRAZOLE
     Dosage: ON CHEMOTHERAPY DAYS
  13. TRAMADOL [Concomitant]
     Active Substance: TRAMADOL
     Indication: Pain management
     Dosage: DOSE AND FREQUENCY WERE NOT REPORTED

REACTIONS (9)
  - Diarrhoea [Unknown]
  - Upper-airway cough syndrome [Unknown]
  - Leukopenia [Unknown]
  - Breast ulceration [Unknown]
  - Wound secretion [Unknown]
  - Bone disorder [Unknown]
  - Pseudomonas infection [Unknown]
  - Granuloma [Unknown]
  - Pseudomonas test positive [Unknown]
